FAERS Safety Report 18230359 (Version 3)
Quarter: 2025Q3

REPORT INFORMATION
  Report Type: Spontaneous
  Country: EU (occurrence: EU)
  Receive Date: 20200904
  Receipt Date: 20250901
  Transmission Date: 20251020
  Serious: Yes (Hospitalization, Other)
  Sender: AUROBINDO
  Company Number: EU-STADA-206574

PATIENT
  Age: 39 Year
  Sex: Female

DRUGS (5)
  1. RISPERIDONE [Suspect]
     Active Substance: RISPERIDONE
     Indication: Bipolar I disorder
     Dosage: 2 MILLIGRAM, ONCE A DAY
     Route: 065
  2. LEVOMEPROMAZINE [Suspect]
     Active Substance: LEVOMEPROMAZINE
     Indication: Bipolar I disorder
     Dosage: 400 MILLIGRAM, ONCE A DAY
     Route: 065
  3. HALOPERIDOL [Suspect]
     Active Substance: HALOPERIDOL
     Indication: Bipolar I disorder
     Dosage: 5 MILLIGRAM, ONCE A DAY
     Route: 065
  4. CLONAZEPAM [Suspect]
     Active Substance: CLONAZEPAM
     Indication: Bipolar I disorder
     Dosage: 7 MILLIGRAM, ONCE A DAY
     Route: 065
  5. LITHIUM CARBONATE [Suspect]
     Active Substance: LITHIUM CARBONATE
     Indication: Bipolar I disorder
     Dosage: 800 MILLIGRAM, ONCE A DAY
     Route: 065

REACTIONS (3)
  - Altered state of consciousness [Recovered/Resolved]
  - Hypothermia [Recovered/Resolved]
  - Electrocardiogram abnormal [Recovered/Resolved]
